FAERS Safety Report 4613672-3 (Version None)
Quarter: 2005Q1

REPORT INFORMATION
  Report Type: 
  Country: None (occurrence: None)
  Receive Date: 20050321
  Receipt Date: 20050307
  Transmission Date: 20050727
  Serious: Yes (Other)
  Sender: FDA-Public Use
  Company Number: 200510897FR

PATIENT
  Age: 37 Year
  Sex: Female

DRUGS (3)
  1. BIRODOGYL [Suspect]
     Route: 048
     Dates: start: 20050307, end: 20050307
  2. UNKNOWN DRUG [Concomitant]
     Indication: THYROID DISORDER
  3. ARTICAINE [Concomitant]

REACTIONS (10)
  - ANXIETY [None]
  - DIZZINESS [None]
  - DRY MOUTH [None]
  - MALAISE [None]
  - MUSCULOSKELETAL STIFFNESS [None]
  - PALPITATIONS [None]
  - SYNCOPE VASOVAGAL [None]
  - TACHYCARDIA [None]
  - TREMOR [None]
  - WEIGHT DECREASED [None]
